FAERS Safety Report 4485019-7 (Version None)
Quarter: 2004Q3

REPORT INFORMATION
  Report Type: 
  Country: None (occurrence: None)
  Receive Date: 20040921
  Receipt Date: 20030902
  Transmission Date: 20050211
  Serious: Yes (Death)
  Sender: FDA-Public Use
  Company Number: 163-20785-03090366

PATIENT
  Age: 78 Year
  Sex: Female

DRUGS (5)
  1. THALOMID [Suspect]
     Indication: MULTIPLE MYELOMA
     Dosage: 400 MG, QD, ORAL
     Route: 048
     Dates: start: 20000126, end: 20000420
  2. CYCLOPHOSPHAMIDE [Suspect]
     Indication: MULTIPLE MYELOMA
     Dosage: 1125MG/D, X5D, INTRAVENOUS
     Route: 042
     Dates: start: 20000414, end: 20000418
  3. ADRIAMYCIN PFS [Suspect]
     Indication: MULTIPLE MYELOMA
     Dosage: 22.5MG/D, X5D, INTRAVENOUS
     Route: 042
     Dates: start: 20000414, end: 20000418
  4. DEXAMETHASONE (DEXAMETHASONE) (INJECTION) [Suspect]
     Indication: MULTIPLE MYELOMA
     Dosage: 40 MG, X4D, INTRAVENOUS
     Route: 042
     Dates: start: 20000414, end: 20000418
  5. MELPHALAN (MELPHALAN) (INJECTION) [Suspect]
     Indication: MULTIPLE MYELOMA
     Dosage: 140 MG/M2, INTRAVENOUS
     Route: 042
     Dates: start: 20000803, end: 20001101

REACTIONS (2)
  - DEATH [None]
  - DISEASE PROGRESSION [None]
